FAERS Safety Report 24419081 (Version 2)
Quarter: 2024Q4

REPORT INFORMATION
  Report Type: Report from Study
  Country: US (occurrence: US)
  Receive Date: 20241009
  Receipt Date: 20241018
  Transmission Date: 20250115
  Serious: No
  Sender: ROCHE
  Company Number: US-ROCHE-3486776

PATIENT
  Age: 58 Year
  Sex: Female

DRUGS (4)
  1. ACTIVASE [Suspect]
     Active Substance: ALTEPLASE
     Indication: Essential hypertension
     Dosage: (50 MG / 50 ML)
     Route: 065
  2. ACTIVASE [Suspect]
     Active Substance: ALTEPLASE
     Route: 065
     Dates: start: 20240102
  3. CATHFLO ACTIVASE [Suspect]
     Active Substance: ALTEPLASE
     Indication: Essential hypertension
     Dosage: DATE OF SERVICE: 07/JAN/2024
     Route: 065
  4. CATHFLO ACTIVASE [Suspect]
     Active Substance: ALTEPLASE
     Route: 065

REACTIONS (3)
  - Off label use [Unknown]
  - No adverse event [Unknown]
  - Off label use [Unknown]
